FAERS Safety Report 9637691 (Version 1)
Quarter: 2013Q4

REPORT INFORMATION
  Report Type: Report from Study
  Country: US (occurrence: US)
  Receive Date: 20131022
  Receipt Date: 20131022
  Transmission Date: 20140711
  Serious: Yes (Other)
  Sender: FDA-Public Use
  Company Number: US-SA-2013SA105271

PATIENT
  Sex: Male

DRUGS (1)
  1. AUBAGIO [Suspect]
     Route: 065

REACTIONS (1)
  - Trigeminal neuralgia [Unknown]
